FAERS Safety Report 12621769 (Version 1)
Quarter: 2016Q3

REPORT INFORMATION
  Report Type: Spontaneous
  Country: None (occurrence: None)
  Receive Date: 20160803
  Receipt Date: 20160803
  Transmission Date: 20161109
  Serious: Yes (Other)
  Sender: FDA-Public Use
  Company Number: None

PATIENT
  Age: 42 Year
  Sex: Male
  Weight: 57.61 kg

DRUGS (1)
  1. TEMSIROLIMUS CONCENTRATED, 25MG/ML PFIZER [Suspect]
     Active Substance: TEMSIROLIMUS
     Indication: RENAL CELL CARCINOMA
     Route: 040

REACTIONS (5)
  - Dizziness [None]
  - Blood pressure systolic increased [None]
  - Asthenia [None]
  - Vomiting [None]
  - Hyperhidrosis [None]

NARRATIVE: CASE EVENT DATE: 20160801
